FAERS Safety Report 25196976 (Version 1)
Quarter: 2025Q2

REPORT INFORMATION
  Report Type: Report from Study
  Country: JP (occurrence: JP)
  Receive Date: 20250415
  Receipt Date: 20250415
  Transmission Date: 20250717
  Serious: Yes (Life-Threatening, Other)
  Sender: AUROBINDO
  Company Number: JP-AUROBINDO-AUR-APL-2021-044641

PATIENT
  Age: 56 Year
  Sex: Male
  Weight: 61 kg

DRUGS (4)
  1. FOLOTYN [Suspect]
     Active Substance: PRALATREXATE
     Indication: Anaplastic large cell lymphoma T- and null-cell types
     Route: 042
     Dates: start: 20210324, end: 20210408
  2. FOLOTYN [Suspect]
     Active Substance: PRALATREXATE
     Route: 042
     Dates: start: 20210415, end: 20210422
  3. FOLIC ACID [Concomitant]
     Active Substance: FOLIC ACID
     Indication: Product used for unknown indication
     Route: 065
     Dates: start: 20210219, end: 20210506
  4. VITAMIN B12 [Concomitant]
     Active Substance: CYANOCOBALAMIN
     Indication: Product used for unknown indication
     Route: 065
     Dates: start: 20210205

REACTIONS (9)
  - Blood lactate dehydrogenase increased [Not Recovered/Not Resolved]
  - Blood alkaline phosphatase increased [Not Recovered/Not Resolved]
  - White blood cell count decreased [Recovered/Resolved]
  - Neutrophil count decreased [Recovered/Resolved]
  - Platelet count decreased [Not Recovered/Not Resolved]
  - Aspartate aminotransferase increased [Recovering/Resolving]
  - Alanine aminotransferase increased [Recovering/Resolving]
  - Haemoglobin decreased [Not Recovered/Not Resolved]
  - Blood bilirubin increased [Not Recovered/Not Resolved]

NARRATIVE: CASE EVENT DATE: 20210326
